FAERS Safety Report 7273593-7 (Version None)
Quarter: 2011Q1

REPORT INFORMATION
  Report Type: 
  Country: None (occurrence: None)
  Receive Date: 20110203
  Receipt Date: 20100728
  Transmission Date: 20110831
  Serious: No
  Sender: FDA-Public Use
  Company Number: US-ABBOTT-10P-163-0658829-00

PATIENT
  Sex: Female
  Weight: 75.818 kg

DRUGS (3)
  1. SYNTHROID [Suspect]
     Indication: HYPOTHYROIDISM
     Dosage: ONCE DAILY IN THE EVENING
     Route: 048
     Dates: start: 19850101
  2. SYNTHROID [Suspect]
     Dosage: ONCE DAILY IN THE EVENING
  3. SYNTHROID [Suspect]
     Indication: HYPOTHYROIDISM
     Route: 048

REACTIONS (8)
  - WEIGHT INCREASED [None]
  - DRUG INEFFECTIVE [None]
  - OEDEMA PERIPHERAL [None]
  - BREAST TENDERNESS [None]
  - MIDDLE INSOMNIA [None]
  - ASTHMA [None]
  - WHEEZING [None]
  - PRURITUS [None]
